FAERS Safety Report 13346442 (Version 2)
Quarter: 2017Q2

REPORT INFORMATION
  Report Type: Other
  Country: IT (occurrence: IT)
  Receive Date: 20170317
  Receipt Date: 20170412
  Transmission Date: 20170830
  Serious: Yes (Life-Threatening, Hospitalization, Other)
  Sender: FDA-Public Use
  Company Number: IT-ACTELION-A-CH2017-151053

PATIENT
  Age: 43 Year
  Sex: Female

DRUGS (3)
  1. ACETYLSALICYLIC ACID [Concomitant]
     Active Substance: ASPIRIN
  2. BOSENTAN. [Suspect]
     Active Substance: BOSENTAN
     Indication: SCLERODERMA ASSOCIATED DIGITAL ULCER
     Dosage: 125 MG, BID
     Route: 048
  3. ENDOPROST [Concomitant]
     Active Substance: ILOPROST TROMETHAMINE

REACTIONS (12)
  - Myocardial fibrosis [Unknown]
  - Generalised oedema [Unknown]
  - Leukopenia [Recovering/Resolving]
  - Hypotension [Unknown]
  - Dyspnoea [Unknown]
  - Implantable defibrillator insertion [Unknown]
  - Bundle branch block right [Unknown]
  - Right ventricular failure [Unknown]
  - Brain natriuretic peptide increased [Unknown]
  - Ventricular extrasystoles [Unknown]
  - Ventricular tachycardia [Recovered/Resolved]
  - Myocarditis [Unknown]
